FAERS Safety Report 21319066 (Version 1)
Quarter: 2022Q3

REPORT INFORMATION
  Report Type: Spontaneous
  Country: US (occurrence: US)
  Receive Date: 20220911
  Receipt Date: 20220911
  Transmission Date: 20221027
  Serious: No
  Sender: FDA-Public Use
  Company Number: US-SANOFI-01255373

PATIENT
  Age: 67 Year
  Sex: Female

DRUGS (7)
  1. AMBIEN CR [Suspect]
     Active Substance: ZOLPIDEM TARTRATE
     Indication: Insomnia
     Dosage: 12.5 MG QD
  2. MEPERIDINE [Concomitant]
     Active Substance: MEPERIDINE
     Dosage: UNK
  3. MELATONIN [Concomitant]
     Active Substance: MELATONIN
     Dosage: UNK
  4. NORCO [Concomitant]
     Active Substance: ACETAMINOPHEN\HYDROCODONE BITARTRATE
     Indication: Pain
     Dosage: UNK
  5. AMBIEN [Concomitant]
     Active Substance: ZOLPIDEM TARTRATE
     Dosage: UNK
  6. ATIVAN [Concomitant]
     Active Substance: LORAZEPAM
     Dosage: UNK
  7. LORAZEPAM [Concomitant]
     Active Substance: LORAZEPAM
     Dosage: UNK

REACTIONS (8)
  - Trigeminal neuralgia [Unknown]
  - Housebound [Unknown]
  - Tooth injury [Unknown]
  - Illness [Unknown]
  - Hangover [Unknown]
  - Feeling abnormal [Unknown]
  - Tooth extraction [Unknown]
  - Headache [Unknown]
